FAERS Safety Report 14174686 (Version 2)
Quarter: 2017Q4

REPORT INFORMATION
  Report Type: Report from Study
  Country: US (occurrence: US)
  Receive Date: 20171109
  Receipt Date: 20171123
  Transmission Date: 20180321
  Serious: Yes (Hospitalization)
  Sender: FDA-Public Use
  Company Number: US-ASTRAZENECA-2017SF07903

PATIENT
  Age: 55 Year
  Sex: Male
  Weight: 74.1 kg

DRUGS (9)
  1. EMLA [Concomitant]
     Active Substance: LIDOCAINE\PRILOCAINE
     Dates: start: 20151201, end: 20171012
  2. COMPAZINE [Concomitant]
     Active Substance: PROCHLORPERAZINE MALEATE
     Dates: start: 20151201, end: 20171012
  3. ZOFRAN [Concomitant]
     Active Substance: ONDANSETRON HYDROCHLORIDE
     Dates: start: 20051201, end: 20171012
  4. TAGRISSO [Suspect]
     Active Substance: OSIMERTINIB
     Indication: NON-SMALL CELL LUNG CANCER METASTATIC
     Route: 048
     Dates: start: 20170628, end: 20171012
  5. ELIQUIS [Concomitant]
     Active Substance: APIXABAN
     Dates: start: 20170505
  6. PRINIVIL [Concomitant]
     Active Substance: LISINOPRIL
     Dates: start: 20170830, end: 20171012
  7. DELTASONE [Concomitant]
     Active Substance: PREDNISONE
     Route: 048
     Dates: start: 20061116, end: 20171012
  8. NORCO [Concomitant]
     Active Substance: ACETAMINOPHEN\HYDROCODONE BITARTRATE
     Dates: start: 20160303, end: 20171012
  9. FOLVITE [Concomitant]
     Active Substance: FOLIC ACID
     Dates: start: 20161110, end: 20171012

REACTIONS (2)
  - Jugular vein thrombosis [Recovering/Resolving]
  - Subclavian vein thrombosis [Recovering/Resolving]

NARRATIVE: CASE EVENT DATE: 20171012
